FAERS Safety Report 25189424 (Version 1)
Quarter: 2025Q2

REPORT INFORMATION
  Report Type: Spontaneous
  Country: US (occurrence: US)
  Receive Date: 20250411
  Receipt Date: 20250411
  Transmission Date: 20250716
  Serious: Yes (Hospitalization)
  Sender: MYLAN
  Company Number: US-MYLANLABS-2025M1031344

PATIENT
  Age: 66 Year
  Sex: Male

DRUGS (6)
  1. VANCOMYCIN [Suspect]
     Active Substance: VANCOMYCIN
     Indication: Clostridium difficile colitis
  2. VANCOMYCIN [Suspect]
     Active Substance: VANCOMYCIN
     Route: 048
  3. VANCOMYCIN [Suspect]
     Active Substance: VANCOMYCIN
     Route: 048
  4. VANCOMYCIN [Suspect]
     Active Substance: VANCOMYCIN
  5. AVELUMAB [Concomitant]
     Active Substance: AVELUMAB
     Indication: Bladder cancer stage IV
     Route: 065
  6. AVELUMAB [Concomitant]
     Active Substance: AVELUMAB

REACTIONS (1)
  - Drug ineffective [Unknown]
